FAERS Safety Report 6144479-6 (Version None)
Quarter: 2009Q2

REPORT INFORMATION
  Report Type: 
  Country: None (occurrence: None)
  Receive Date: 20090406
  Receipt Date: 20090108
  Transmission Date: 20091009
  Serious: Yes (Hospitalization)
  Sender: FDA-Public Use
  Company Number: PL-PFIZER INC-2008097573

PATIENT

DRUGS (13)
  1. BLINDED *PLACEBO [Suspect]
     Dosage: UNK MG, UNK
     Route: 048
     Dates: start: 20080918, end: 20081116
  2. BLINDED FESOTERODINE [Suspect]
     Dosage: UNK MG, UNK
     Route: 048
     Dates: start: 20080918, end: 20081116
  3. ALL OTHER THERAPEUTIC PRODUCTS [Concomitant]
     Route: 048
     Dates: start: 20040101
  4. PENTOXIFYLLINE [Concomitant]
     Route: 048
     Dates: start: 20040101
  5. AMLODIPINE BESYLATE [Concomitant]
     Route: 048
     Dates: start: 20040101
  6. METFORMIN HCL [Concomitant]
     Route: 048
     Dates: start: 20040101
  7. INSULATARD [Concomitant]
     Route: 058
     Dates: start: 20040101
  8. ACTRAPID [Concomitant]
     Route: 058
     Dates: start: 20040101
  9. MOLSIDOMINE [Concomitant]
     Route: 048
     Dates: start: 20070101
  10. RAMIPRIL [Concomitant]
     Route: 048
     Dates: start: 20070101
  11. METOPROLOL [Concomitant]
     Route: 048
     Dates: start: 20070101
  12. BUFLOMEDIL HYDROCHLORIDE [Concomitant]
     Route: 048
     Dates: start: 20040101
  13. DOXAZOSIN MESYLATE [Concomitant]
     Route: 048
     Dates: start: 20050101

REACTIONS (8)
  - ATRIAL FIBRILLATION [None]
  - BLOOD GLUCOSE INCREASED [None]
  - CREPITATIONS [None]
  - HYPOKALAEMIA [None]
  - HYPOTENSION [None]
  - LEFT VENTRICULAR HYPERTROPHY [None]
  - MITRAL VALVE INCOMPETENCE [None]
  - TRICUSPID VALVE INCOMPETENCE [None]
